FAERS Safety Report 8486057-X (Version None)
Quarter: 2012Q3

REPORT INFORMATION
  Report Type: 
  Country: None (occurrence: None)
  Receive Date: 20120703
  Receipt Date: 20120618
  Transmission Date: 20120928
  Serious: Yes (Disabling, Other)
  Sender: FDA-Public Use
  Company Number: US-ARROW-2012-11158

PATIENT
  Age: 60 Year
  Sex: Female

DRUGS (2)
  1. ARIPIPRAZOLE [Suspect]
     Indication: MAJOR DEPRESSION
     Dosage: 5 MG, DAILY
     Route: 065
     Dates: start: 20110201
  2. LAMOTRIGINE [Suspect]
     Indication: MAJOR DEPRESSION
     Dosage: 300 MG, DAILY FOR SEVERAL YEARS
     Route: 065

REACTIONS (2)
  - DRUG INTERACTION [None]
  - INTENTION TREMOR [None]
